FAERS Safety Report 8791927 (Version 1)
Quarter: 2012Q4

REPORT INFORMATION
  Report Type: 
  Country: US (occurrence: US)
  Receive Date: 20120918
  Receipt Date: 20120918
  Transmission Date: 20130627
  Serious: No
  Sender: FDA-Public Use
  Company Number: US-ASTRAZENECA-2012SE69675

PATIENT
  Sex: Male

DRUGS (15)
  1. SYMBICORT [Suspect]
     Indication: EMPHYSEMA
     Dosage: 160/4.5 MCG, 2 PUFFS, BID
     Route: 055
     Dates: start: 201109
  2. LISINOPRIL [Suspect]
     Indication: BLOOD PRESSURE ABNORMAL
     Route: 048
  3. LISINOPRIL [Suspect]
     Indication: CARDIAC DISORDER
     Route: 048
  4. OMEPRAZOLE [Suspect]
     Indication: GASTRIC DISORDER
     Route: 048
  5. FORMOTEROL [Concomitant]
     Indication: EMPHYSEMA
  6. MOMETASONE [Concomitant]
     Indication: EMPHYSEMA
  7. SIMVASTATIN [Concomitant]
     Indication: BLOOD CHOLESTEROL ABNORMAL
  8. PENTOXIFYLLINE [Concomitant]
     Indication: CARDIOVASCULAR DISORDER
  9. AMLODIPINE [Concomitant]
     Indication: BLOOD PRESSURE ABNORMAL
  10. PLAVIX [Concomitant]
  11. PIOGLITAZONE HCL [Concomitant]
     Indication: DIABETES MELLITUS
  12. ZOLPIDEM TARTRATE [Concomitant]
     Indication: SLEEP DISORDER
     Dosage: 10 MG, AT NIGHT, PRN, USES ONCE OR TWICE A MONTH
  13. CARVEDILOL [Concomitant]
     Indication: CARDIAC DISORDER
  14. CARVEDILOL [Concomitant]
     Indication: BLOOD PRESSURE ABNORMAL
  15. VITAMIN D [Concomitant]
     Dosage: 1000 IU DAILY FOR 2 MONTHS

REACTIONS (6)
  - Osteoarthritis [Unknown]
  - Pneumonia [Unknown]
  - Diabetes mellitus [Unknown]
  - Cataract [Unknown]
  - Emphysema [Unknown]
  - Drug ineffective [Unknown]
